FAERS Safety Report 8156888-4 (Version None)
Quarter: 2012Q1

REPORT INFORMATION
  Report Type: 
  Country: None (occurrence: None)
  Receive Date: 20120222
  Receipt Date: 20120213
  Transmission Date: 20120608
  Serious: Yes (Life-Threatening)
  Sender: FDA-Public Use
  Company Number: JP-GLAXOSMITHKLINE-B0780417A

PATIENT
  Sex: Male

DRUGS (2)
  1. ZANAMIVIR [Suspect]
     Indication: INFLUENZA
     Route: 042
     Dates: start: 20120203, end: 20120203
  2. CEFTRIAXONE SODIUM [Concomitant]
     Dosage: 1G PER DAY
     Route: 042
     Dates: start: 20120203

REACTIONS (1)
  - HAEMOGLOBIN DECREASED [None]
